FAERS Safety Report 7755763-4 (Version None)
Quarter: 2011Q3

REPORT INFORMATION
  Report Type: 
  Country: None (occurrence: None)
  Receive Date: 20110916
  Receipt Date: 20110912
  Transmission Date: 20111222
  Serious: Yes (Death, Hospitalization, Other)
  Sender: FDA-Public Use
  Company Number: PHEH2008US09016

PATIENT
  Sex: Female
  Weight: 70.748 kg

DRUGS (72)
  1. AREDIA [Suspect]
     Dosage: 90 MG, UNK
     Dates: start: 20040324, end: 20070326
  2. ACIPHEX [Concomitant]
     Dosage: UNK
     Route: 048
  3. ROBINUL [Concomitant]
  4. LASIX [Concomitant]
  5. ALPRAZOLAM [Concomitant]
     Dosage: UNK
  6. OXYCODONE HCL AND ACETAMINOPHEN [Concomitant]
     Dosage: UNK
  7. PROCHLORPERAZINE [Concomitant]
     Dosage: UNK
  8. FLUMIL (FLUCONAZOLE) [Concomitant]
     Dosage: UNK
  9. BLOOD TRANSFUSION, AUXILIARY PRODUCTS [Concomitant]
  10. GLYBURIDE [Concomitant]
     Dosage: UNK
     Route: 048
  11. PREDNISONE [Concomitant]
     Dosage: UNK
  12. PROZAC [Concomitant]
     Dosage: UNK
     Route: 048
  13. VELCADE [Concomitant]
     Dosage: UNK
  14. TUSSIONEX [Concomitant]
     Dosage: UNK
  15. ZOLOFT [Concomitant]
     Dosage: UNK
     Route: 048
  16. ADRIABLASTIN + VCR + DACARBAZINE [Concomitant]
     Dosage: 15 MG, UNK
  17. NEOSTIGMINE [Concomitant]
  18. FENTANYL [Concomitant]
  19. GLIPIZIDE [Concomitant]
     Dosage: UNK
  20. FUROSEMIDE [Concomitant]
     Dosage: UNK
  21. AZITHROMYCIN [Concomitant]
     Dosage: UNK
  22. CELEBREX [Concomitant]
     Dosage: UNK
     Route: 048
  23. NEURONTIN [Concomitant]
     Dosage: UNK
     Route: 048
  24. DECADRON [Concomitant]
     Dosage: UNK
  25. LEUKERAN [Concomitant]
     Dosage: UNK
  26. CEFTIN [Concomitant]
     Dosage: UNK
  27. AMBIEN [Concomitant]
     Dosage: UNK
     Route: 048
  28. MELPHALAN HYDROCHLORIDE [Concomitant]
     Dosage: UNK
  29. PEPCID [Concomitant]
  30. BREVIBLOC [Concomitant]
  31. ETOMIDATE [Concomitant]
  32. LOVENOX [Concomitant]
  33. TEMAZEPAM [Concomitant]
     Dosage: UNK
  34. AMPICILLIN TRIHYDRATE [Concomitant]
     Dosage: UNK
  35. NYSTATIN [Concomitant]
     Dosage: UNK
  36. GABAPENTIN [Concomitant]
     Dosage: UNK
  37. NEXIUM [Concomitant]
     Dosage: UNK
     Route: 048
  38. CEFOTAN [Concomitant]
  39. ALKERAN [Concomitant]
     Dosage: UNK
  40. PROPOXYPHENE NAPSYLATE W/ ACETAMINOPHEN [Concomitant]
     Dosage: UNK
  41. HYDROCODONE BITARTRATE AND ACETAMINOPHEN [Concomitant]
     Dosage: UNK
  42. GENTAMICIN EYE DROPS BP 2003 [Concomitant]
     Dosage: UNK
  43. ALEVE [Concomitant]
     Dosage: UNK
     Route: 048
  44. MECLIZINE [Concomitant]
     Dosage: UNK
     Route: 048
  45. ARANESP [Concomitant]
     Dosage: UNK
  46. GLUCOVANCE [Concomitant]
     Dosage: UNK
  47. COUMADIN [Concomitant]
     Route: 048
  48. SUBLIMAZE PRESERVATIVE FREE [Concomitant]
  49. NOVOLIN 70/30 [Concomitant]
  50. CEPHALEXIN [Concomitant]
     Dosage: UNK
  51. CHEMOTHERAPEUTICS NOS [Concomitant]
  52. LORTAB [Concomitant]
     Dosage: UNK
     Route: 048
  53. LANTUS [Concomitant]
     Dosage: UNK
     Route: 058
  54. LOVASTATIN [Concomitant]
     Dosage: UNK
     Route: 048
  55. THALIDOMIDE [Concomitant]
     Dosage: UNK
     Route: 048
  56. RESTORIL [Concomitant]
     Dosage: UNK
     Route: 048
  57. PROCRIT                            /00909301/ [Concomitant]
     Dosage: UNK
  58. MORPHINE SULFATE [Concomitant]
  59. COMPAZINE [Concomitant]
  60. ACYCLOVIR [Concomitant]
     Dosage: UNK
  61. ACTOS [Concomitant]
     Dosage: UNK
     Route: 048
  62. HUMALOG [Concomitant]
     Dosage: UNK
     Route: 058
  63. AMOXICILLIN [Concomitant]
     Dosage: UNK
     Route: 048
  64. XANAX [Concomitant]
     Dosage: UNK
     Route: 048
  65. ZOFRAN [Concomitant]
     Dosage: 32 MG, UNK
  66. DEXAMETHASONE [Concomitant]
     Dosage: 20 MG, QW
  67. ZITHROMAX [Concomitant]
     Dosage: UNK
     Dates: start: 20060111
  68. ACETAMINOPHEN [Concomitant]
  69. CIPROFLOXACIN [Concomitant]
     Dosage: UNK
  70. LEVAQUIN [Concomitant]
     Dosage: UNK
  71. WARFARIN SODIUM [Concomitant]
     Dosage: UNK
  72. PEG 3350 AND ELECTROLYTES [Concomitant]
     Dosage: UNK

REACTIONS (55)
  - LUNG INFILTRATION [None]
  - ANXIETY [None]
  - TOOTH FRACTURE [None]
  - JOINT EFFUSION [None]
  - JOINT DISLOCATION [None]
  - ANAEMIA [None]
  - PNEUMONIA PRIMARY ATYPICAL [None]
  - RENAL FAILURE ACUTE [None]
  - ANHEDONIA [None]
  - CONTUSION [None]
  - EXCORIATION [None]
  - COUGH [None]
  - SPINAL COMPRESSION FRACTURE [None]
  - UTERINE POLYP [None]
  - OSTEONECROSIS OF JAW [None]
  - ADNEXA UTERI MASS [None]
  - FALL [None]
  - HYPOGLYCAEMIA [None]
  - BREAST MASS [None]
  - LUNG NEOPLASM [None]
  - EAR INFECTION [None]
  - PAIN [None]
  - INTERVERTEBRAL DISC DEGENERATION [None]
  - THROMBOCYTOPENIA [None]
  - ORAL DISORDER [None]
  - ARTHRITIS [None]
  - PYREXIA [None]
  - DEPRESSION [None]
  - UPPER RESPIRATORY TRACT INFECTION [None]
  - OVARIAN MASS [None]
  - INJURY [None]
  - ARTHRALGIA [None]
  - LIGAMENT SPRAIN [None]
  - DIZZINESS [None]
  - ABDOMINAL PAIN [None]
  - MULTIPLE MYELOMA [None]
  - PULMONARY OEDEMA [None]
  - HYPONATRAEMIA [None]
  - RESPIRATORY FAILURE [None]
  - CEREBROVASCULAR ACCIDENT [None]
  - SPONDYLOLISTHESIS [None]
  - HYPERGLYCAEMIA [None]
  - HIATUS HERNIA [None]
  - OEDEMA PERIPHERAL [None]
  - BEDRIDDEN [None]
  - OSTEOLYSIS [None]
  - WEIGHT DECREASED [None]
  - INTERSTITIAL LUNG DISEASE [None]
  - DEEP VEIN THROMBOSIS [None]
  - RED BLOOD CELL ABNORMALITY [None]
  - DISABILITY [None]
  - BONE DISORDER [None]
  - BALANCE DISORDER [None]
  - SYNOVIAL CYST [None]
  - JOINT SWELLING [None]
